FAERS Safety Report 5295908-1 (Version None)
Quarter: 2007Q2

REPORT INFORMATION
  Report Type: 
  Country: None (occurrence: None)
  Receive Date: 20070413
  Receipt Date: 20070330
  Transmission Date: 20071010
  Serious: Yes (Other)
  Sender: FDA-Public Use
  Company Number: ES-JNJFOC-20070400662

PATIENT
  Sex: Male

DRUGS (1)
  1. REMICADE [Suspect]
     Indication: CROHN'S DISEASE
     Dosage: THERAPY END DATE: OCT-NOV-2006
     Route: 042

REACTIONS (1)
  - RENAL CELL CARCINOMA STAGE UNSPECIFIED [None]
